FAERS Safety Report 23027324 (Version 1)
Quarter: 2023Q4

REPORT INFORMATION
  Report Type: Spontaneous
  Country: US (occurrence: None)
  Receive Date: 20231003
  Receipt Date: 20231003
  Transmission Date: 20240110
  Serious: No
  Sender: FDA-Public Use
  Company Number: None

PATIENT
  Age: 28 Year
  Sex: Female

DRUGS (1)
  1. EOS THE FIXER HEAL REPAIR MEDICATED ANALGESIC LIP [Suspect]
     Active Substance: ALLANTOIN\CAMPHOR (NATURAL)\MENTHOL
     Indication: Dry skin prophylaxis
     Route: 061
     Dates: start: 20231001, end: 20231003

REACTIONS (2)
  - Lip blister [None]
  - Lip swelling [None]

NARRATIVE: CASE EVENT DATE: 20231001
